FAERS Safety Report 5013575-9 (Version None)
Quarter: 2006Q2

REPORT INFORMATION
  Report Type: 
  Country: None (occurrence: None)
  Receive Date: 20060525
  Receipt Date: 20060512
  Transmission Date: 20061013
  Serious: Yes (Other)
  Sender: FDA-Public Use
  Company Number: HQWYE353916MAY06

PATIENT
  Age: 49 Year
  Sex: Female
  Weight: 116.22 kg

DRUGS (18)
  1. PREMARIN [Suspect]
     Indication: HORMONE REPLACEMENT THERAPY
     Dosage: SEE IMAGE
     Route: 067
     Dates: start: 19920101, end: 20030101
  2. PREMARIN [Suspect]
     Indication: HORMONE REPLACEMENT THERAPY
     Dosage: SEE IMAGE
     Route: 067
     Dates: start: 20030101, end: 20060428
  3. PREMARIN [Suspect]
     Indication: HORMONE REPLACEMENT THERAPY
     Dosage: SEE IMAGE
     Route: 067
     Dates: start: 20060505
  4. PLAVIX [Concomitant]
  5. VERAPAMIL [Concomitant]
  6. LASIX [Concomitant]
  7. KLOR-CON [Concomitant]
  8. WELCHOL [Concomitant]
  9. ALLEGRA [Concomitant]
  10. ZANTAC [Concomitant]
  11. ELIDEL [Concomitant]
  12. GABAPENTIN [Concomitant]
  13. PHENERGAN (DIBROMPROPAMIDINE ISETIONATE/PROMETHAZINE HYDROCHLORIDE) [Concomitant]
  14. BACLOFEN [Concomitant]
  15. IBUPROFEN [Concomitant]
  16. DURAGESIC-100 [Concomitant]
  17. ALBUTEROL [Concomitant]
  18. ONE-A-DAY (ASCORBIC ACID/CYANOCOBALAMIN/ERGOCALCIFEROL/NICOTINAMIDE/PY [Concomitant]

REACTIONS (8)
  - BLOOD VISCOSITY INCREASED [None]
  - CRYING [None]
  - EMOTIONAL DISORDER [None]
  - FACTOR V DEFICIENCY [None]
  - HOT FLUSH [None]
  - PANCREATIC MASS [None]
  - PROTEIN S DECREASED [None]
  - VULVOVAGINAL DRYNESS [None]
